FAERS Safety Report 8856295 (Version 1)
Quarter: 2012Q4

REPORT INFORMATION
  Report Type: Spontaneous
  Country: GB (occurrence: None)
  Receive Date: 20121018
  Receipt Date: 20121018
  Transmission Date: 20130627
  Serious: Yes (Life-Threatening)
  Sender: FDA-Public Use
  Company Number: 2012MZ000377

PATIENT
  Age: 78 Year
  Sex: Female

DRUGS (1)
  1. XEOMIN [Suspect]
     Indication: BLADDER DISORDER
     Route: 043
     Dates: start: 20101018, end: 20101018

REACTIONS (6)
  - Pneumonia aspiration [None]
  - Choking [None]
  - Syncope [None]
  - Headache [None]
  - Haemoglobin decreased [None]
  - Muscular weakness [None]
